FAERS Safety Report 25990560 (Version 1)
Quarter: 2025Q4

REPORT INFORMATION
  Report Type: Spontaneous
  Country: US (occurrence: US)
  Receive Date: 20251103
  Receipt Date: 20251103
  Transmission Date: 20260118
  Serious: Yes (Other)
  Sender: SANOFI AVENTIS
  Company Number: US-SA-2025SA324416

PATIENT
  Age: 20 Year
  Sex: Male

DRUGS (2)
  1. ELOCTATE [Suspect]
     Active Substance: EFMOROCTOCOG ALFA
     Indication: Factor VIII deficiency
     Dosage: 4500 IU, EVERY TUESDAY AND FRIDAY
     Route: 042
     Dates: start: 201402
  2. ELOCTATE [Suspect]
     Active Substance: EFMOROCTOCOG ALFA
     Indication: Factor VIII deficiency
     Dosage: 4500 IU, EVERY TUESDAY AND FRIDAY
     Route: 042
     Dates: start: 201402

REACTIONS (4)
  - Internal haemorrhage [Recovered/Resolved]
  - Road traffic accident [Unknown]
  - Skin abrasion [Unknown]
  - Swelling [Unknown]

NARRATIVE: CASE EVENT DATE: 20251019
